FAERS Safety Report 5928566-0 (Version None)
Quarter: 2008Q4

REPORT INFORMATION
  Report Type: 
  Country: None (occurrence: None)
  Receive Date: 20081020
  Receipt Date: 20080811
  Transmission Date: 20090506
  Serious: Yes (Death)
  Sender: FDA-Public Use
  Company Number: CL001172008

PATIENT
  Age: 68 Year
  Sex: Female

DRUGS (7)
  1. FLUCONAZOLE [Suspect]
     Indication: NEUROCRYPTOCOCCOSIS
     Dosage: 400-600 MG
  2. INDAPAMIDE [Concomitant]
  3. AMPHOTERICIN B [Concomitant]
  4. FLUCYTOSINE [Concomitant]
  5. METOPROLOL TARTRATE [Concomitant]
  6. ASPIRIN [Concomitant]
  7. AMPHOTERICIN B [Concomitant]

REACTIONS (5)
  - BRAIN INJURY [None]
  - CARDIO-RESPIRATORY ARREST [None]
  - GRAND MAL CONVULSION [None]
  - TORSADE DE POINTES [None]
  - VENTRICULAR FIBRILLATION [None]
